FAERS Safety Report 14554383 (Version 3)
Quarter: 2019Q1

REPORT INFORMATION
  Report Type: Report from Study
  Country: KR (occurrence: KR)
  Receive Date: 20180220
  Receipt Date: 20190131
  Transmission Date: 20190417
  Serious: Yes (Hospitalization)
  Sender: FDA-Public Use
  Company Number: KR-PFIZER INC-2018063569

PATIENT
  Age: 69 Year
  Sex: Male
  Weight: 55 kg

DRUGS (22)
  1. THIOCTIC ACID [Concomitant]
     Active Substance: THIOCTIC ACID
     Indication: DIABETES MELLITUS
     Dosage: 600 MG, 1X/DAY
     Dates: start: 2007, end: 20180209
  2. URSA [Concomitant]
     Active Substance: URSODIOL
     Indication: PROPHYLAXIS
     Dosage: 200 MG, 3X/DAY
     Dates: start: 20180109, end: 20180111
  3. IRINOTECAN HCL [Suspect]
     Active Substance: IRINOTECAN HYDROCHLORIDE
     Indication: SMALL CELL LUNG CANCER
     Dosage: 588 MG, TOTAL DAILY DOSE, CYCLE 1
     Route: 041
     Dates: start: 20180109, end: 20180201
  4. DEXAMETHASONE. [Concomitant]
     Active Substance: DEXAMETHASONE
     Indication: PREMEDICATION
     Dosage: 10 ML, 1X/DAY
     Dates: start: 20180109, end: 20180109
  5. STOMOL [Concomitant]
     Indication: PREMEDICATION
     Dosage: 5 MG, 1X/DAY
     Dates: start: 20180109, end: 20180109
  6. TACENOL [Concomitant]
     Indication: PREMEDICATION
     Dosage: 1300 MG, 1X/DAY
     Dates: start: 20180109, end: 20180109
  7. DINUTUXIMAB [Suspect]
     Active Substance: DINUTUXIMAB
     Dosage: UNK
     Route: 041
  8. GLIMEPIRIDE. [Concomitant]
     Active Substance: GLIMEPIRIDE
     Indication: DIABETES MELLITUS
     Dosage: 1 MG, 2X/DAY
     Dates: start: 2007, end: 20180119
  9. NOVOMIX [Concomitant]
     Active Substance: INSULIN ASPART
     Indication: DIABETES MELLITUS
     Dosage: 15 IU, 2X/DAY
     Dates: start: 2007, end: 20180119
  10. DEXAMETHASONE. [Concomitant]
     Active Substance: DEXAMETHASONE
     Indication: PROPHYLAXIS
     Dosage: 7.5 MG, 1X/DAY
     Dates: start: 20150110, end: 20150111
  11. PENIRAMIN [Concomitant]
     Indication: PREMEDICATION
     Dosage: 4 MG, 1X/DAY
     Dates: start: 20180109, end: 20180109
  12. IRINOTECAN HCL [Suspect]
     Active Substance: IRINOTECAN HYDROCHLORIDE
     Dosage: 486 MG, TOTAL DAILY DOSE, CYCLE 2
     Route: 041
     Dates: start: 20180205
  13. SODIUM CHLORIDE. [Concomitant]
     Active Substance: SODIUM CHLORIDE
     Indication: PROPHYLAXIS
     Dosage: 44 CC/HR 1X/DAY
     Dates: start: 20180108, end: 20180108
  14. MAGMIL S [Concomitant]
     Indication: PROPHYLAXIS
     Dosage: 250 MG, 3X/DAY
     Dates: start: 20180109, end: 20180111
  15. LEUKOKINE [Concomitant]
     Indication: NEUTROPHIL COUNT DECREASED
     Dosage: 150 UG, 1X/DAY
     Dates: start: 20180116, end: 20180116
  16. KANITRON [Concomitant]
     Indication: PREMEDICATION
     Dosage: 3 MG, 1X/DAY
     Dates: start: 20180109, end: 20180109
  17. ATROPINE SULFATE. [Concomitant]
     Active Substance: ATROPINE SULFATE
     Indication: PREMEDICATION
     Dosage: 0.5 MG, 1X/DAY
     Dates: start: 20180109, end: 20180109
  18. GRACIN [Concomitant]
     Indication: NEUTROPHIL COUNT DECREASED
     Dosage: 300 UG, 1X/DAY
  19. IRINOTECAN HCL [Suspect]
     Active Substance: IRINOTECAN HYDROCHLORIDE
     Dosage: UNK
     Route: 041
  20. KANITRON [Concomitant]
     Indication: PROPHYLAXIS
     Dosage: 1 MG, 1X/DAY
     Dates: start: 20180110, end: 20180112
  21. DINUTUXIMAB [Suspect]
     Active Substance: DINUTUXIMAB
     Indication: SMALL CELL LUNG CANCER
     Dosage: 26.8 MG, TOTAL DAILY DOSE, CYCLE 1
     Route: 041
     Dates: start: 20180109, end: 20180201
  22. DINUTUXIMAB [Suspect]
     Active Substance: DINUTUXIMAB
     Dosage: 25.92 MG, TOTAL DAILY DOSE, CYCLE 2
     Route: 041
     Dates: start: 20180205

REACTIONS (2)
  - Muscular weakness [Recovered/Resolved]
  - Hypoglycaemia [Recovered/Resolved]

NARRATIVE: CASE EVENT DATE: 20180119
